FAERS Safety Report 6543970-8 (Version None)
Quarter: 2010Q1

REPORT INFORMATION
  Report Type: 
  Country: None (occurrence: None)
  Receive Date: 20100120
  Receipt Date: 20100107
  Transmission Date: 20100710
  Serious: Yes (Death, Hospitalization, Other)
  Sender: FDA-Public Use
  Company Number: PHHY2008JP32158

PATIENT
  Sex: Female
  Weight: 66 kg

DRUGS (8)
  1. CGS 20267 T30748+TAB [Suspect]
     Indication: BREAST CANCER
     Dosage: 2.5 MG, QD
     Route: 048
     Dates: start: 20071203
  2. XELODA [Suspect]
     Dosage: 2400 MG/DAY
     Route: 048
     Dates: start: 20071203, end: 20080814
  3. AROMASIN [Concomitant]
     Dosage: UNK
     Dates: start: 20070329, end: 20071202
  4. VINORELBINE [Concomitant]
     Dosage: UNK
     Dates: start: 20070704, end: 20071122
  5. TRASTUZUMAB [Concomitant]
     Dosage: 130 MG
     Route: 042
     Dates: start: 20070409, end: 20090226
  6. KENALOG [Concomitant]
     Dosage: UNK
     Dates: start: 20071225
  7. SOLDACTONE [Concomitant]
     Dosage: 200 MG, UNK
     Route: 042
     Dates: start: 20081020, end: 20081104
  8. NEOMALLERMIN [Concomitant]
     Dosage: UNK
     Route: 048
     Dates: start: 20090110, end: 20090306

REACTIONS (11)
  - ASCITES [None]
  - BLOOD BILIRUBIN INCREASED [None]
  - FALL [None]
  - HEPATIC FUNCTION ABNORMAL [None]
  - HUMERUS FRACTURE [None]
  - METASTASES TO BONE [None]
  - OEDEMA PERIPHERAL [None]
  - PALMAR-PLANTAR ERYTHRODYSAESTHESIA SYNDROME [None]
  - RIB FRACTURE [None]
  - STOMATITIS [None]
  - VARICES OESOPHAGEAL [None]
